FAERS Safety Report 5271151-7 (Version None)
Quarter: 2007Q1

REPORT INFORMATION
  Report Type: 
  Country: None (occurrence: None)
  Receive Date: 20070321
  Receipt Date: 20070313
  Transmission Date: 20070707
  Serious: Yes (Hospitalization)
  Sender: FDA-Public Use
  Company Number: US-ROCHE-487022

PATIENT
  Age: 80 Year
  Sex: Female

DRUGS (2)
  1. BONIVA [Suspect]
     Indication: OSTEOPOROSIS
     Dosage: COURSE 1.
     Route: 048
     Dates: start: 20060101, end: 20070101
  2. BONIVA [Suspect]
     Dosage: COURSE 2.
     Route: 048
     Dates: start: 20070301

REACTIONS (2)
  - FATIGUE [None]
  - PARATHYROID DISORDER [None]
